FAERS Safety Report 7903916-4 (Version None)
Quarter: 2011Q4

REPORT INFORMATION
  Report Type: 
  Country: None (occurrence: None)
  Receive Date: 20111109
  Receipt Date: 20111104
  Transmission Date: 20120403
  Serious: Yes (Hospitalization)
  Sender: FDA-Public Use
  Company Number: US-BRISTOL-MYERS SQUIBB COMPANY-16216301

PATIENT
  Age: 70 Year
  Sex: Female
  Weight: 67 kg

DRUGS (23)
  1. DIOVAN [Concomitant]
  2. GABAPENTIN [Concomitant]
  3. CARBOPLATIN [Suspect]
     Indication: NON-SMALL CELL LUNG CANCER
     Dosage: LAST DOSE:26OCT11
     Dates: start: 20110928
  4. MORPHINE SULFATE [Concomitant]
     Route: 055
  5. VICODIN [Concomitant]
  6. ZITHROMAX [Concomitant]
  7. SIMVASTATIN [Concomitant]
  8. MOUTHWASH [Concomitant]
  9. TESSALON [Concomitant]
  10. TAXOL [Suspect]
     Indication: NON-SMALL CELL LUNG CANCER
     Dosage: LAST DOSE:26OCT11
     Dates: start: 20110928
  11. ADVAIR DISKUS 100/50 [Concomitant]
  12. COLACE [Concomitant]
  13. ASPIRIN [Concomitant]
  14. EMLA [Concomitant]
     Route: 061
  15. FLUTICASONE PROPIONATE [Concomitant]
  16. METFORMIN HCL [Concomitant]
  17. ALLOPURINOL [Concomitant]
  18. AMBIEN [Concomitant]
  19. COMPAZINE [Concomitant]
  20. ROBITUSSIN AC [Concomitant]
  21. ROXICODONE [Concomitant]
  22. MAGNESIUM HYDROXIDE TAB [Concomitant]
  23. OMEPRAZOLE [Concomitant]

REACTIONS (17)
  - BLOOD BILIRUBIN INCREASED [None]
  - PLATELET COUNT DECREASED [None]
  - NEUTROPHIL COUNT DECREASED [None]
  - WHITE BLOOD CELL COUNT DECREASED [None]
  - BLOOD CALCIUM DECREASED [None]
  - PNEUMONITIS [None]
  - SEPSIS [None]
  - FEBRILE NEUTROPENIA [None]
  - BLOOD ALBUMIN DECREASED [None]
  - OESOPHAGITIS [None]
  - COUGH [None]
  - BLOOD MAGNESIUM DECREASED [None]
  - HAEMOGLOBIN DECREASED [None]
  - BRONCHITIS [None]
  - BLOOD PHOSPHORUS DECREASED [None]
  - BACTERIAL TEST POSITIVE [None]
  - BLOOD SODIUM DECREASED [None]
